FAERS Safety Report 6712280-8 (Version None)
Quarter: 2010Q2

REPORT INFORMATION
  Report Type: 
  Country: None (occurrence: None)
  Receive Date: 20100505
  Receipt Date: 20100423
  Transmission Date: 20101027
  Serious: Yes (Hospitalization, Other)
  Sender: FDA-Public Use
  Company Number: US-ELI_LILLY_AND_COMPANY-US201004007903

PATIENT
  Age: 65 Year

DRUGS (1)
  1. ZYPREXA [Suspect]
     Dosage: 1 D/F, UNK

REACTIONS (2)
  - ANTIPHOSPHOLIPID ANTIBODIES [None]
  - CEREBROVASCULAR ACCIDENT [None]
